FAERS Safety Report 9099664 (Version 2)
Quarter: 2013Q1

REPORT INFORMATION
  Report Type: Spontaneous
  Country: GB (occurrence: GB)
  Receive Date: 20130122
  Receipt Date: 20130122
  Transmission Date: 20140127
  Serious: Yes (Hospitalization)
  Sender: FDA-Public Use
  Company Number: GB-JNJFOC-20121111346

PATIENT
  Sex: Male

DRUGS (2)
  1. ROGAINE EXTRA STRENGTH [Suspect]
     Route: 065
  2. ROGAINE EXTRA STRENGTH [Suspect]
     Indication: PRODUCT USED FOR UNKNOWN INDICATION
     Route: 065

REACTIONS (1)
  - Hypersensitivity [Recovering/Resolving]
